FAERS Safety Report 9883210 (Version 1)
Quarter: 2014Q1

REPORT INFORMATION
  Report Type: Spontaneous
  Country: DK (occurrence: DK)
  Receive Date: 20140208
  Receipt Date: 20140208
  Transmission Date: 20141002
  Serious: Yes (Other)
  Sender: FDA-Public Use
  Company Number: DK-MYLANLABS-2014S1001909

PATIENT
  Age: 37 Year
  Sex: Female

DRUGS (1)
  1. TAMOXIFEN [Suspect]
     Indication: HORMONE THERAPY
     Dates: start: 20110826, end: 20120525

REACTIONS (2)
  - Condition aggravated [Unknown]
  - Malaise [Unknown]
